FAERS Safety Report 12704599 (Version 2)
Quarter: 2016Q4

REPORT INFORMATION
  Report Type: Spontaneous
  Country: US (occurrence: US)
  Receive Date: 20160831
  Receipt Date: 20161003
  Transmission Date: 20170207
  Serious: No
  Sender: FDA-Public Use
  Company Number: US-PFIZER INC-2016404554

PATIENT
  Age: 48 Year
  Sex: Female

DRUGS (3)
  1. XELJANZ XR [Suspect]
     Active Substance: TOFACITINIB CITRATE
     Indication: RHEUMATOID ARTHRITIS
  2. XELJANZ XR [Suspect]
     Active Substance: TOFACITINIB CITRATE
     Indication: VITAMIN D DEFICIENCY
     Dosage: 11 MG, UNK
  3. XELJANZ XR [Suspect]
     Active Substance: TOFACITINIB CITRATE
     Indication: MONONEUROPATHY

REACTIONS (2)
  - Haemorrhoids [Unknown]
  - Product use issue [Unknown]

NARRATIVE: CASE EVENT DATE: 201607
